FAERS Safety Report 14471699 (Version 2)
Quarter: 2018Q1

REPORT INFORMATION
  Report Type: Spontaneous
  Country: RU (occurrence: RU)
  Receive Date: 20180131
  Receipt Date: 20180227
  Transmission Date: 20180509
  Serious: Yes (Other)
  Sender: FDA-Public Use
  Company Number: RU-SA-2018SA018358

PATIENT
  Sex: Male

DRUGS (1)
  1. PLAVIX [Suspect]
     Active Substance: CLOPIDOGREL BISULFATE
     Route: 048

REACTIONS (2)
  - Product counterfeit [Unknown]
  - Thrombosis [Unknown]
